FAERS Safety Report 5939978-3 (Version None)
Quarter: 2008Q4

REPORT INFORMATION
  Report Type: 
  Country: None (occurrence: None)
  Receive Date: 20081104
  Receipt Date: 20081024
  Transmission Date: 20090506
  Serious: No
  Sender: FDA-Public Use
  Company Number: IT-JNJFOC-20081000835

PATIENT
  Age: 38 Year
  Sex: Male

DRUGS (2)
  1. RISPERDAL [Suspect]
     Indication: SCHIZOPHRENIA
     Route: 048
  2. LORAZEPAM [Concomitant]

REACTIONS (3)
  - FOLATE DEFICIENCY [None]
  - LEUKOPENIA [None]
  - NEUTROPENIA [None]
